FAERS Safety Report 10405611 (Version 1)
Quarter: 2014Q3

REPORT INFORMATION
  Report Type: Spontaneous
  Country: US (occurrence: None)
  Receive Date: 20140822
  Receipt Date: 20140822
  Transmission Date: 20150326
  Serious: Yes (Hospitalization)
  Sender: FDA-Public Use
  Company Number: None

PATIENT
  Age: 9 Year
  Sex: Male
  Weight: 42.3 kg

DRUGS (4)
  1. DEXAMETHASONE. [Suspect]
     Active Substance: DEXAMETHASONE
  2. MERCAPTOPURINE. [Suspect]
     Active Substance: MERCAPTOPURINE
  3. METHOTREXATE [Suspect]
     Active Substance: METHOTREXATE
  4. VINCRISTINE SULFATE. [Suspect]
     Active Substance: VINCRISTINE SULFATE

REACTIONS (29)
  - Confusional state [None]
  - Mental status changes [None]
  - Neutropenia [None]
  - Areflexia [None]
  - Corneal reflex decreased [None]
  - Nausea [None]
  - Eye movement disorder [None]
  - Headache [None]
  - Haemophilus test positive [None]
  - Cardiac arrest [None]
  - Pallor [None]
  - Abdominal pain [None]
  - Pancytopenia [None]
  - Bradycardia [None]
  - Cardiac disorder [None]
  - Back pain [None]
  - Hepatomegaly [None]
  - Hepatitis acute [None]
  - Depressed level of consciousness [None]
  - Viral sepsis [None]
  - Dyspnoea exertional [None]
  - Disseminated intravascular coagulation [None]
  - Multi-organ failure [None]
  - Cholelithiasis [None]
  - Pupil fixed [None]
  - Dizziness [None]
  - Respiratory rate increased [None]
  - Tachycardia [None]
  - Pulseless electrical activity [None]

NARRATIVE: CASE EVENT DATE: 20140811
